FAERS Safety Report 8436182-4 (Version None)
Quarter: 2012Q2

REPORT INFORMATION
  Report Type: 
  Country: None (occurrence: None)
  Receive Date: 20120614
  Receipt Date: 20120607
  Transmission Date: 20120825
  Serious: Yes (Death, Hospitalization)
  Sender: FDA-Public Use
  Company Number: FR-PFIZER INC-FR-WYE-G02977409

PATIENT
  Age: 47 Year
  Sex: Female

DRUGS (9)
  1. INDORAMIN [Suspect]
     Indication: MIGRAINE
     Dosage: 2 TABLETS TOTAL DAILY
     Route: 048
     Dates: start: 20081015, end: 20081104
  2. EFFEXOR XR [Suspect]
     Indication: DEPRESSION
     Dosage: 225 MG TOTAL DAILY
     Route: 048
  3. TRIMEPRAZINE TARTRATE [Concomitant]
     Dosage: UNK
     Route: 048
  4. TERCIAN [Concomitant]
     Dosage: UNK
     Route: 048
  5. ACUPAN [Suspect]
     Indication: MIGRAINE
     Dosage: 120 MG TOTAL DAILY
     Route: 042
     Dates: start: 20081102, end: 20081104
  6. KETOPROFEN [Suspect]
     Indication: MIGRAINE
     Dosage: 100 MG, 3X/DAY
     Route: 042
     Dates: start: 20081102, end: 20081104
  7. ACETAMINOPHEN [Suspect]
     Indication: MIGRAINE
     Dosage: 4 G TOTAL DAILY
     Route: 042
     Dates: start: 20081102, end: 20081104
  8. LIORESAL [Suspect]
     Indication: MIGRAINE
     Dosage: 5 MG, 3X/DAY
     Route: 048
     Dates: start: 20081025, end: 20081104
  9. PROPRANOLOL [Suspect]
     Dosage: 40 MG, 2X/DAY
     Route: 048
     Dates: start: 20081015, end: 20081104

REACTIONS (5)
  - MIGRAINE [None]
  - CONDITION AGGRAVATED [None]
  - ANAEMIA [None]
  - MALAISE [None]
  - CARDIAC ARREST [None]
